FAERS Safety Report 4262964-9 (Version None)
Quarter: 2004Q1

REPORT INFORMATION
  Report Type: 
  Country: None (occurrence: None)
  Receive Date: 20040105
  Receipt Date: 20031124
  Transmission Date: 20041129
  Serious: Yes (Hospitalization)
  Sender: FDA-Public Use
  Company Number: FR-BRISTOL-MYERS SQUIBB COMPANY-12443651

PATIENT
  Age: 68 Year
  Sex: Male

DRUGS (3)
  1. CETUXIMAB [Suspect]
     Indication: NON-SMALL CELL LUNG CANCER
     Dosage: STOP DATE OF THERAPY: 26-AUG-2002.
     Route: 042
     Dates: start: 20020729, end: 20020729
  2. CISPLATIN [Suspect]
     Indication: NON-SMALL CELL LUNG CANCER
     Dosage: INITIAL DATE OF THERAPY: 29-JUL-2002. STOP DATE OF THERAPY: 26-AUG-2002
     Route: 042
     Dates: start: 20020820, end: 20020820
  3. VINORELBINE TARTRATE [Suspect]
     Indication: NON-SMALL CELL LUNG CANCER
     Dosage: INITIAL THERAPY DATE: 29-JUL-2002. STOP DATE OF THERAPY: 26-AUG-2002.
     Route: 042
     Dates: start: 20020826, end: 20020826

REACTIONS (2)
  - DEHYDRATION [None]
  - DIARRHOEA [None]
